FAERS Safety Report 5326981-X (Version None)
Quarter: 2007Q2

REPORT INFORMATION
  Report Type: 
  Country: None (occurrence: None)
  Receive Date: 20070220
  Receipt Date: 20070103
  Transmission Date: 20071010
  Serious: No
  Sender: FDA-Public Use
  Company Number: WAES 0701USA00549

PATIENT
  Age: 50 Year
  Sex: Female

DRUGS (1)
  1. TAB JANUVIA UNK [Suspect]
     Indication: DIABETES MELLITUS NON-INSULIN-DEPENDENT
     Dosage: 100 MG, DAILY, PO
     Route: 048

REACTIONS (1)
  - HEAD TITUBATION [None]
